FAERS Safety Report 10868895 (Version 3)
Quarter: 2022Q1

REPORT INFORMATION
  Report Type: Spontaneous
  Country: FR (occurrence: None)
  Receive Date: 20150225
  Receipt Date: 20220120
  Transmission Date: 20220424
  Serious: Yes (Death, Congenital Anomaly)
  Sender: FDA-Public Use
  Company Number: 2015SE18086

PATIENT
  Sex: Male

DRUGS (4)
  1. OMEPRAZOLE [Suspect]
     Active Substance: OMEPRAZOLE
     Route: 064
     Dates: start: 20150105
  2. AZATHIOPRINE SODIUM [Suspect]
     Active Substance: AZATHIOPRINE SODIUM
     Indication: Crohn^s disease
     Route: 064
     Dates: start: 201402
  3. FOLIC ACID [Suspect]
     Active Substance: FOLIC ACID
     Route: 064
  4. RANITIDINE HYDROCHLORIDE [Suspect]
     Active Substance: RANITIDINE HYDROCHLORIDE
     Route: 064
     Dates: start: 20141128, end: 20141228

REACTIONS (1)
  - Spina bifida [Fatal]

NARRATIVE: CASE EVENT DATE: 20150101
